FAERS Safety Report 9154238 (Version 4)
Quarter: 2013Q2

REPORT INFORMATION
  Report Type: Report from Study
  Country: CH (occurrence: CH)
  Receive Date: 20130311
  Receipt Date: 20130508
  Transmission Date: 20140414
  Serious: Yes (Life-Threatening, Hospitalization, Other)
  Sender: FDA-Public Use
  Company Number: CH-GENZYME-CLOF-1002531

PATIENT
  Age: 62 Year
  Sex: Female
  Weight: 55 kg

DRUGS (8)
  1. EVOLTRA [Suspect]
     Indication: ACUTE MYELOID LEUKAEMIA
     Dosage: 15.06 MG (ARM B; INDUCTION II PHASE) ;UNK
     Route: 042
     Dates: start: 20130129, end: 20130202
  2. CYTARABINE [Suspect]
     Indication: ACUTE MYELOID LEUKAEMIA
     Dosage: 3012.46 ;BID
     Route: 042
     Dates: start: 20130129, end: 20130203
  3. AMSACRINE [Suspect]
     Indication: ACUTE MYELOID LEUKAEMIA
     Dosage: 180.75MG ;QD
     Route: 042
     Dates: start: 20130201, end: 20130203
  4. VALACICLOVIR [Suspect]
     Indication: ANTIVIRAL PROPHYLAXIS
     Dosage: (2X500 MG); BID
     Route: 048
     Dates: start: 20121219, end: 20130222
  5. CEFEPIME [Suspect]
     Indication: FEBRILE NEUTROPENIA
     Dosage: UNK; (3X2 G)
     Route: 042
     Dates: start: 20130205
  6. CEFEPIME [Suspect]
     Indication: BRONCHOPNEUMONIA
  7. PIPERACILLIN W [Suspect]
     Indication: FEBRILE NEUTROPENIA
     Dosage: UNK, (3X4.5 G)
     Route: 042
     Dates: start: 20130215
  8. PIPERACILLIN W [Suspect]
     Indication: BRONCHOPNEUMONIA

REACTIONS (8)
  - Periorbital infection [Recovered/Resolved]
  - Sinus polyp [Recovered/Resolved]
  - Swelling [Not Recovered/Not Resolved]
  - Neuritis [Recovered/Resolved]
  - Pachymeningitis [Recovered/Resolved]
  - Febrile neutropenia [Recovered/Resolved]
  - Bronchopneumonia [Recovered/Resolved]
  - Sinusitis aspergillus [Not Recovered/Not Resolved]
